FAERS Safety Report 19286054 (Version 1)
Quarter: 2021Q2

REPORT INFORMATION
  Report Type: Spontaneous
  Country: US (occurrence: US)
  Receive Date: 20210521
  Receipt Date: 20210521
  Transmission Date: 20210717
  Serious: Yes (Hospitalization, Other)
  Sender: FDA-Public Use
  Company Number: US-BRISTOL-MYERS SQUIBB COMPANY-BMS-2021-047726

PATIENT
  Age: 6 Decade
  Sex: Female

DRUGS (2)
  1. OPDIVO [Suspect]
     Active Substance: NIVOLUMAB
     Indication: LUNG CANCER METASTATIC
     Dosage: UNAVAILABLE
     Route: 065
  2. YERVOY [Suspect]
     Active Substance: IPILIMUMAB
     Indication: LUNG CANCER METASTATIC
     Dosage: UNK
     Route: 065

REACTIONS (2)
  - COVID-19 [Recovering/Resolving]
  - Pancytopenia [Recovering/Resolving]
